FAERS Safety Report 15233220 (Version 1)
Quarter: 2018Q4

REPORT INFORMATION
  Report Type: Spontaneous
  Country: US (occurrence: US)
  Receive Date: 20180802
  Receipt Date: 20180802
  Transmission Date: 20190204
  Serious: No
  Sender: FDA-Public Use
  Company Number: US-ENDO PHARMACEUTICALS INC-2017-007377

PATIENT
  Sex: Female

DRUGS (1)
  1. HYDROCODONE BITARTRATE / ACETAMINOPHEN ORAL SOL 7.5MG/325MG PER 15ML [Suspect]
     Active Substance: ACETAMINOPHEN\HYDROCODONE BITARTRATE
     Indication: PRODUCT USED FOR UNKNOWN INDICATION
     Dosage: UNK UNK, UNKNOWN
     Route: 065

REACTIONS (2)
  - Dizziness [Unknown]
  - Malaise [Unknown]
